FAERS Safety Report 14529493 (Version 1)
Quarter: 2018Q1

REPORT INFORMATION
  Report Type: Spontaneous
  Country: US (occurrence: US)
  Receive Date: 20180214
  Receipt Date: 20180214
  Transmission Date: 20180509
  Serious: No
  Sender: FDA-Public Use
  Company Number: US-JNJFOC-20180112534

PATIENT

DRUGS (1)
  1. RISPERIDONE. [Suspect]
     Active Substance: RISPERIDONE
     Indication: PRODUCT USED FOR UNKNOWN INDICATION
     Route: 065

REACTIONS (6)
  - Dental caries [Unknown]
  - Fungal skin infection [Not Recovered/Not Resolved]
  - Pharyngitis [Unknown]
  - Tinnitus [Unknown]
  - Balance disorder [Unknown]
  - Anogenital warts [Unknown]

NARRATIVE: CASE EVENT DATE: 2010
